FAERS Safety Report 20278668 (Version 1)
Quarter: 2022Q1

REPORT INFORMATION
  Report Type: Other
  Country: US (occurrence: None)
  Receive Date: 20220103
  Receipt Date: 20220103
  Transmission Date: 20220423
  Serious: Yes (Hospitalization, Other)
  Sender: FDA-Public Use
  Company Number: US-ROCHE-2986824

PATIENT
  Age: 64 Year
  Sex: Female

DRUGS (2)
  1. OCREVUS [Suspect]
     Active Substance: OCRELIZUMAB
     Indication: Multiple sclerosis
     Route: 065
     Dates: start: 20170907
  2. OCREVUS [Suspect]
     Active Substance: OCRELIZUMAB
     Indication: Secondary progressive multiple sclerosis
     Route: 042

REACTIONS (9)
  - Meningitis fungal [Recovering/Resolving]
  - Urinary tract infection [Unknown]
  - Bladder dysfunction [Recovered/Resolved]
  - Dysarthria [Recovered/Resolved]
  - Altered state of consciousness [Recovered/Resolved]
  - Tremor [Recovered/Resolved]
  - Sepsis [Recovered/Resolved]
  - Candida infection [Recovered/Resolved]
  - Hand-foot-and-mouth disease [Recovering/Resolving]

NARRATIVE: CASE EVENT DATE: 20211113
